FAERS Safety Report 5749486-0 (Version None)
Quarter: 2008Q2

REPORT INFORMATION
  Report Type: 
  Country: None (occurrence: None)
  Receive Date: 20080527
  Receipt Date: 20080519
  Transmission Date: 20081010
  Serious: Yes (Death, Hospitalization)
  Sender: FDA-Public Use
  Company Number: B0448342A

PATIENT
  Age: 39 Year
  Sex: Male

DRUGS (18)
  1. FLOLAN [Suspect]
     Indication: PULMONARY HYPERTENSION
     Route: 042
     Dates: start: 20041229
  2. TORSEMIDE [Concomitant]
     Route: 048
  3. TRACLEER [Concomitant]
     Route: 048
  4. DIPRIVAN [Concomitant]
     Route: 042
  5. HALOPERIDOL [Concomitant]
  6. MIDAZOLAM HCL [Concomitant]
  7. LEPETAN [Concomitant]
  8. FAMOTIDINE [Concomitant]
     Route: 042
  9. HANP [Concomitant]
     Route: 042
  10. VITAJECT [Concomitant]
     Route: 042
  11. PANSPORIN [Concomitant]
  12. GENTACIN [Concomitant]
  13. ORGARAN [Concomitant]
     Route: 042
  14. NEOPHYLLIN INJECTION [Concomitant]
     Route: 042
  15. VANCOMYCIN [Concomitant]
     Route: 042
  16. MEROPEN [Concomitant]
     Route: 042
  17. MORPHINE HCL ELIXIR [Concomitant]
  18. MILRINONE LACTATE [Concomitant]
     Route: 042

REACTIONS (7)
  - CARDIAC FAILURE [None]
  - CATHETER RELATED INFECTION [None]
  - CYANOSIS [None]
  - DISSEMINATED INTRAVASCULAR COAGULATION [None]
  - DYSPNOEA [None]
  - HAEMOPTYSIS [None]
  - PNEUMONIA [None]
